FAERS Safety Report 23505958 (Version 1)
Quarter: 2024Q1

REPORT INFORMATION
  Report Type: Spontaneous
  Country: US (occurrence: None)
  Receive Date: 20240208
  Receipt Date: 20240208
  Transmission Date: 20240410
  Serious: Yes (Disabling)
  Sender: FDA-Public Use
  Company Number: None

PATIENT
  Age: 43 Year
  Sex: Female
  Weight: 87.3 kg

DRUGS (7)
  1. TRULICITY [Suspect]
     Active Substance: DULAGLUTIDE
     Indication: Diabetes mellitus
     Dates: start: 20231226, end: 20240114
  2. Insulin pump with humalog [Concomitant]
  3. GABAPENTIN [Concomitant]
     Active Substance: GABAPENTIN
  4. ATORVASTATIN [Concomitant]
     Active Substance: ATORVASTATIN
  5. DEXILANT [Concomitant]
     Active Substance: DEXLANSOPRAZOLE
  6. LISINOPRIL [Concomitant]
     Active Substance: LISINOPRIL
  7. VITAMINS [Concomitant]
     Active Substance: VITAMINS

REACTIONS (5)
  - Tonsillar hypertrophy [None]
  - Choking sensation [None]
  - Streptococcus test positive [None]
  - Lymphadenopathy [None]
  - Therapy interrupted [None]

NARRATIVE: CASE EVENT DATE: 20231229
